FAERS Safety Report 5427520-5 (Version None)
Quarter: 2007Q3

REPORT INFORMATION
  Report Type: 
  Country: None (occurrence: None)
  Receive Date: 20070824
  Receipt Date: 20070824
  Transmission Date: 20080115
  Serious: Yes (Other)
  Sender: FDA-Public Use
  Company Number: None

PATIENT
  Age: 68 Year
  Sex: Male
  Weight: 90.7194 kg

DRUGS (1)
  1. STADOL [Suspect]
     Indication: MIGRAINE
     Dosage: ONCE IV
     Route: 042
     Dates: start: 20070822, end: 20070822

REACTIONS (6)
  - CONDITION AGGRAVATED [None]
  - DISORIENTATION [None]
  - DREAMY STATE [None]
  - HYPERHIDROSIS [None]
  - NAUSEA [None]
  - RETCHING [None]
